FAERS Safety Report 9769437 (Version 1)
Quarter: 2013Q4

REPORT INFORMATION
  Report Type: Spontaneous
  Country: US (occurrence: US)
  Receive Date: 20131218
  Receipt Date: 20131218
  Transmission Date: 20140711
  Serious: Yes (Hospitalization)
  Sender: FDA-Public Use
  Company Number: US-ASTRAZENECA-2013SE90181

PATIENT
  Age: 65 Year
  Sex: Female
  Weight: 63.5 kg

DRUGS (23)
  1. OMEPRAZOLE [Suspect]
     Route: 048
  2. MORPHINE [Suspect]
     Route: 048
  3. ELAVIL [Suspect]
     Route: 048
  4. VIIBRYD [Suspect]
     Indication: MAJOR DEPRESSION
     Route: 048
     Dates: start: 20130703, end: 2013
  5. VIIBRYD [Suspect]
     Indication: MAJOR DEPRESSION
     Route: 048
     Dates: start: 2013
  6. VIIBRYD [Suspect]
     Indication: MAJOR DEPRESSION
     Route: 048
     Dates: start: 2013
  7. VIIBRYD [Suspect]
     Indication: MAJOR DEPRESSION
     Route: 048
     Dates: start: 20130917, end: 201310
  8. VIIBRYD [Suspect]
     Indication: MAJOR DEPRESSION
     Route: 048
     Dates: start: 201310
  9. DEXTROSTAT [Suspect]
     Route: 048
  10. DEXTROSTAT [Suspect]
     Route: 048
  11. HYDROCODONE/ACETAMINOPHEN [Concomitant]
     Indication: PAIN
     Dosage: 30 ML, EVERY 4 HOURS, AS NEEDED
     Route: 048
  12. RESTORIL [Concomitant]
     Dosage: 30-60 MG, AT BED TIME AS NEEDED
     Route: 048
  13. WELCHOL [Concomitant]
     Indication: DIARRHOEA
     Dosage: 625 MG, TWICE DAILY AS NEEDED
     Route: 048
  14. METFORMIN [Concomitant]
     Route: 048
  15. CARISOPRODOL [Concomitant]
     Dosage: 350 MG, THREE TIMES DAILY , AS NEEDED
     Route: 048
  16. SIMVASTATIN [Concomitant]
     Route: 048
  17. ATIVAN [Concomitant]
     Indication: ANXIETY
     Dosage: 0.5 MG, THREE TIMES DAILY, AS NEEDED
     Route: 048
  18. PROLIA [Concomitant]
     Indication: OSTEOGENESIS IMPERFECTA
     Dosage: EVERY SIX MONTHS
  19. DILTIAZEM [Concomitant]
     Route: 048
  20. LAMOTRIGINE [Concomitant]
     Indication: DEPRESSION
     Route: 048
  21. MULTIVITAMIN [Concomitant]
  22. VITAMIN B6 [Concomitant]
  23. CYPROHEPTADINE [Concomitant]
     Dates: start: 201310

REACTIONS (4)
  - Serotonin syndrome [Recovered/Resolved]
  - Impaired driving ability [Recovered/Resolved]
  - Drug hypersensitivity [Unknown]
  - Rash [Unknown]
